FAERS Safety Report 6315247-7 (Version None)
Quarter: 2009Q3

REPORT INFORMATION
  Report Type: 
  Country: None (occurrence: None)
  Receive Date: 20090819
  Receipt Date: 20090814
  Transmission Date: 20100115
  Serious: Yes (Hospitalization, Other)
  Sender: FDA-Public Use
  Company Number: US-BRISTOL-MYERS SQUIBB COMPANY-14743132

PATIENT
  Age: 71 Year
  Sex: Female
  Weight: 60 kg

DRUGS (10)
  1. CETUXIMAB [Suspect]
     Indication: NON-SMALL CELL LUNG CANCER
     Route: 042
     Dates: start: 20090612
  2. TARCEVA [Suspect]
     Indication: NON-SMALL CELL LUNG CANCER
     Dosage: 1 DF = 150 UNIT NOS
     Route: 048
     Dates: start: 20090612
  3. LOVENOX [Concomitant]
  4. HYDROCODONE [Concomitant]
     Indication: PAIN
     Dosage: 1 DF = 5/500 UNIT NOS
  5. COMPAZINE [Concomitant]
     Indication: NAUSEA
     Dosage: Q4H
  6. AMIODARONE [Concomitant]
  7. ADVAIR DISKUS 100/50 [Concomitant]
     Dosage: 1 DF = 250/50 1 INHALATION
     Route: 055
  8. EVISTA [Concomitant]
  9. SPIRIVA [Concomitant]
     Dosage: 1 DF = 1 INHALATION
     Route: 055
  10. DOXYCYCLINE [Concomitant]

REACTIONS (2)
  - DIZZINESS [None]
  - HIP FRACTURE [None]
